FAERS Safety Report 5372452-4 (Version None)
Quarter: 2007Q2

REPORT INFORMATION
  Report Type: 
  Country: None (occurrence: None)
  Receive Date: 20070627
  Receipt Date: 20070615
  Transmission Date: 20071010
  Serious: Yes (Hospitalization)
  Sender: FDA-Public Use
  Company Number: FR-GILEAD-2007-0012462

PATIENT
  Age: 44 Year
  Sex: Male

DRUGS (6)
  1. VIREAD [Suspect]
     Indication: HIV INFECTION
     Route: 048
     Dates: start: 20040101, end: 20061108
  2. VIREAD [Suspect]
     Indication: HEPATITIS B VIRUS
  3. AMBISOME [Suspect]
     Indication: VISCERAL LEISHMANIASIS
  4. EPIVIR [Concomitant]
     Indication: HIV INFECTION
     Route: 048
     Dates: end: 20061108
  5. EPIVIR [Concomitant]
     Indication: HEPATITIS B VIRUS
  6. SYMBICORT [Concomitant]
     Indication: BRONCHITIS CHRONIC
     Route: 048

REACTIONS (2)
  - DRUG INEFFECTIVE [None]
  - RENAL TUBULAR DISORDER [None]
